FAERS Safety Report 9524658 (Version 1)
Quarter: 2013Q3

REPORT INFORMATION
  Report Type: Spontaneous
  Country: US (occurrence: US)
  Receive Date: 20130916
  Receipt Date: 20130916
  Transmission Date: 20140515
  Serious: Yes (Other)
  Sender: FDA-Public Use
  Company Number: US-PFIZER INC-2013265614

PATIENT
  Age: 50 Year
  Sex: Male
  Weight: 106 kg

DRUGS (5)
  1. CHANTIX [Suspect]
     Indication: SMOKING CESSATION THERAPY
     Dosage: 0.5MG DAILY
  2. CHANTIX [Suspect]
     Dosage: 1 MG, 2X/DAY
  3. CHANTIX [Suspect]
     Dosage: 0.5MG DAILY
  4. CHANTIX [Suspect]
     Dosage: UNK
     Dates: end: 2012
  5. ALBUTEROL SULFATE/IPRATROPIUM BROMIDE [Suspect]
     Indication: CHRONIC OBSTRUCTIVE PULMONARY DISEASE
     Dosage: 3MG ALBUTEROL SULFATE / 0.5 MG IPRATROPIUM BROMIDE, 6X/DAY

REACTIONS (2)
  - Chronic obstructive pulmonary disease [Unknown]
  - Drug ineffective [Unknown]
